FAERS Safety Report 5629819-6 (Version None)
Quarter: 2008Q1

REPORT INFORMATION
  Report Type: 
  Country: None (occurrence: None)
  Receive Date: 20080218
  Receipt Date: 20080207
  Transmission Date: 20080703
  Serious: Yes (Death, Other)
  Sender: FDA-Public Use
  Company Number: PHBS2008DE01943

PATIENT
  Age: 61 Year
  Sex: Male

DRUGS (4)
  1. CYCLOSPORINE [Suspect]
     Indication: LIVER TRANSPLANT
     Route: 065
  2. BASILIXIMAB [Suspect]
     Indication: LIVER TRANSPLANT
     Dosage: 20 MG ON DAY 0 AND DAY 4
     Route: 042
  3. TACROLIMUS [Suspect]
     Indication: LIVER TRANSPLANT
     Route: 065
  4. CORTICOSTEROIDS [Concomitant]

REACTIONS (7)
  - AGRANULOCYTOSIS [None]
  - CANDIDA SEPSIS [None]
  - CYTOMEGALOVIRUS ANTIBODY POSITIVE [None]
  - GRAFT VERSUS HOST DISEASE [None]
  - MULTI-ORGAN FAILURE [None]
  - PYREXIA [None]
  - RASH [None]
